FAERS Safety Report 8016206-9 (Version None)
Quarter: 2011Q4

REPORT INFORMATION
  Report Type: 
  Country: None (occurrence: None)
  Receive Date: 20111228
  Receipt Date: 20111228
  Transmission Date: 20120403
  Serious: Yes (Life-Threatening, Disabling)
  Sender: FDA-Public Use
  Company Number: None

PATIENT
  Age: 70 Year
  Sex: Female
  Weight: 52.1637 kg

DRUGS (1)
  1. SEROQUEL [Suspect]

REACTIONS (6)
  - HEADACHE [None]
  - BURN OF INTERNAL ORGANS [None]
  - GAIT DISTURBANCE [None]
  - DRUG HYPERSENSITIVITY [None]
  - MUSCLE ATROPHY [None]
  - LOSS OF CONSCIOUSNESS [None]
